FAERS Safety Report 8963228 (Version 1)
Quarter: 2012Q4

REPORT INFORMATION
  Report Type: 
  Country: PL (occurrence: PL)
  Receive Date: 20121214
  Receipt Date: 20121214
  Transmission Date: 20130627
  Serious: Yes (Death)
  Sender: FDA-Public Use
  Company Number: PL-MILLENNIUM PHARMACEUTICALS, INC.-2012-08709

PATIENT

DRUGS (3)
  1. VELCADE [Suspect]
     Indication: MULTIPLE MYELOMA
     Dosage: UNK UNK, Cyclic
     Route: 065
     Dates: start: 201003, end: 201009
  2. THALIDOMIDE [Concomitant]
     Indication: MULTIPLE MYELOMA
     Dosage: UNK
     Route: 065
     Dates: start: 201003, end: 201009
  3. DEXAMETHASONE [Concomitant]
     Indication: MULTIPLE MYELOMA
     Dosage: UNK
     Route: 065
     Dates: start: 201003, end: 201009

REACTIONS (2)
  - Death [Fatal]
  - Upper respiratory tract infection [Unknown]
